FAERS Safety Report 12539436 (Version 1)
Quarter: 2016Q3

REPORT INFORMATION
  Report Type: Spontaneous
  Country: US (occurrence: None)
  Receive Date: 20160707
  Receipt Date: 20160707
  Transmission Date: 20161109
  Serious: Yes (Disabling)
  Sender: FDA-Public Use
  Company Number: None

PATIENT
  Age: 61 Year
  Sex: Female
  Weight: 82.56 kg

DRUGS (8)
  1. FLUVOXAMINE [Concomitant]
     Active Substance: FLUVOXAMINE
  2. SYNTHROID [Concomitant]
     Active Substance: LEVOTHYROXINE SODIUM
  3. GLUCOSAMINE CHONDRODIN [Concomitant]
  4. CALCIUM [Concomitant]
     Active Substance: CALCIUM
  5. NEXIUM [Concomitant]
     Active Substance: ESOMEPRAZOLE MAGNESIUM
  6. CIPRO [Suspect]
     Active Substance: CIPROFLOXACIN HYDROCHLORIDE
     Indication: CAMPYLOBACTER INFECTION
     Route: 048
     Dates: start: 20160122, end: 20160126
  7. MAGNIZIUM [Concomitant]
  8. VIT B [Concomitant]
     Active Substance: VITAMIN B

REACTIONS (2)
  - Neuralgia [None]
  - Asthenia [None]

NARRATIVE: CASE EVENT DATE: 20160122
